FAERS Safety Report 14113603 (Version 1)
Quarter: 2017Q4

REPORT INFORMATION
  Report Type: Spontaneous
  Country: US (occurrence: US)
  Receive Date: 20171023
  Receipt Date: 20171023
  Transmission Date: 20180321
  Serious: No
  Sender: FDA-Public Use
  Company Number: US-BIOGEN-2017BI00474112

PATIENT
  Sex: Female

DRUGS (1)
  1. AVONEX [Suspect]
     Active Substance: INTERFERON BETA-1A
     Indication: MULTIPLE SCLEROSIS
     Route: 065
     Dates: start: 19970201

REACTIONS (4)
  - Chills [Not Recovered/Not Resolved]
  - Mania [Not Recovered/Not Resolved]
  - Memory impairment [Not Recovered/Not Resolved]
  - Influenza like illness [Recovered/Resolved]
